FAERS Safety Report 10276219 (Version 1)
Quarter: 2014Q3

REPORT INFORMATION
  Report Type: Spontaneous
  Country: IE (occurrence: IE)
  Receive Date: 20140703
  Receipt Date: 20140703
  Transmission Date: 20150326
  Serious: Yes (Other)
  Sender: FDA-Public Use
  Company Number: IE-US-EMD SERONO, INC.-7303102

PATIENT
  Age: 15 Year
  Sex: Male

DRUGS (1)
  1. SAIZEN [Suspect]
     Active Substance: SOMATROPIN
     Indication: NOONAN SYNDROME
     Route: 058
     Dates: start: 201009, end: 20111108

REACTIONS (1)
  - Left ventricular hypertrophy [Recovered/Resolved]

NARRATIVE: CASE EVENT DATE: 201106
